FAERS Safety Report 4398134-3 (Version None)
Quarter: 2004Q3

REPORT INFORMATION
  Report Type: 
  Country: None (occurrence: None)
  Receive Date: 20040713
  Receipt Date: 20040630
  Transmission Date: 20050211
  Serious: Yes (Other)
  Sender: FDA-Public Use
  Company Number: 2004034121

PATIENT
  Sex: Female

DRUGS (1)
  1. NEURONTIN [Suspect]
     Indication: ILL-DEFINED DISORDER
     Dosage: 300 MG

REACTIONS (16)
  - BEDRIDDEN [None]
  - CELLULITIS [None]
  - CYSTITIS [None]
  - DEPRESSION [None]
  - DIABETES MELLITUS [None]
  - DIZZINESS [None]
  - DRUG INEFFECTIVE FOR UNAPPROVED INDICATION [None]
  - LUNG NEOPLASM MALIGNANT [None]
  - LYMPHOEDEMA [None]
  - MALAISE [None]
  - MUSCLE CRAMP [None]
  - OEDEMA PERIPHERAL [None]
  - PAIN [None]
  - UNEVALUABLE EVENT [None]
  - VAGINAL PAIN [None]
  - VOMITING [None]
